FAERS Safety Report 22099433 (Version 1)
Quarter: 2023Q1

REPORT INFORMATION
  Report Type: Spontaneous
  Country: CZ (occurrence: CZ)
  Receive Date: 20230315
  Receipt Date: 20230315
  Transmission Date: 20230418
  Serious: Yes (Hospitalization)
  Sender: FDA-Public Use
  Company Number: CZ-ABBVIE-4316013

PATIENT
  Sex: Male

DRUGS (10)
  1. AZACITIDINE [Suspect]
     Active Substance: AZACITIDINE
     Indication: Acute myeloid leukaemia
     Dosage: AZACITIDINE 75MG/M2 + VENETOCLAX 100MG TO 400MG
     Route: 065
     Dates: start: 202208
  2. AZACITIDINE [Suspect]
     Active Substance: AZACITIDINE
     Dosage: AZA 50MG/M2 D1-D5, VEN D1-D14 - 400MG
     Route: 065
     Dates: start: 202212
  3. AZACITIDINE [Suspect]
     Active Substance: AZACITIDINE
     Dosage: 4TH CYCLE AZA 75MG/M2 D1-D5
     Route: 065
     Dates: start: 202212
  4. AZACITIDINE [Suspect]
     Active Substance: AZACITIDINE
     Dosage: STANDARD PROTOCOL AZA 75MG/M2
     Route: 065
     Dates: start: 202210
  5. AZACITIDINE [Suspect]
     Active Substance: AZACITIDINE
     Dosage: STANDARD PROTOCOL AZA 75MG/M2
     Route: 065
     Dates: start: 202209
  6. VENETOCLAX [Suspect]
     Active Substance: VENETOCLAX
     Indication: Acute myeloid leukaemia
     Dosage: STANDARD PROTOCOL AZA 75MG/M2
     Route: 048
     Dates: start: 202209
  7. VENETOCLAX [Suspect]
     Active Substance: VENETOCLAX
     Dosage: 3RD CYCLE STANDARD PROTOCOL AZA 75MG/M2
     Route: 048
     Dates: start: 202210
  8. VENETOCLAX [Suspect]
     Active Substance: VENETOCLAX
     Dosage: AZACITIDINE 75MG/M2 + VENETOCLAX 100MG TO 400MG
     Route: 048
     Dates: start: 202208
  9. VENETOCLAX [Suspect]
     Active Substance: VENETOCLAX
     Dosage: 4TH CYCLE PROTOCOL REDUCTION AZA 75MG/M2 D1-D5
     Route: 048
     Dates: start: 202212
  10. VENETOCLAX [Suspect]
     Active Substance: VENETOCLAX
     Dosage: AZA 50MG/M2 D1-D5, VEN D1-D14 - 400MG
     Route: 048
     Dates: start: 202212

REACTIONS (8)
  - C-reactive protein increased [Unknown]
  - Aphthous ulcer [Unknown]
  - Psychomotor hyperactivity [Unknown]
  - Cytopenia [Unknown]
  - Back pain [Unknown]
  - Asthenia [Unknown]
  - Diarrhoea [Unknown]
  - Dizziness [Unknown]
